FAERS Safety Report 5732336-6 (Version None)
Quarter: 2008Q2

REPORT INFORMATION
  Report Type: 
  Country: None (occurrence: None)
  Receive Date: 20080508
  Receipt Date: 20080428
  Transmission Date: 20081010
  Serious: Yes (Other)
  Sender: FDA-Public Use
  Company Number: US-WYE-H03907408

PATIENT
  Sex: Female

DRUGS (1)
  1. PREMPRO [Suspect]

REACTIONS (12)
  - ANAEMIA [None]
  - CATARACT [None]
  - DEMENTIA [None]
  - DEPRESSION [None]
  - DYSPNOEA [None]
  - HYDROCEPHALUS [None]
  - MITRAL VALVE INCOMPETENCE [None]
  - MYELODYSPLASTIC SYNDROME [None]
  - OSTEOPOROSIS [None]
  - THROMBOSIS [None]
  - VAGINAL HAEMORRHAGE [None]
  - VISUAL DISTURBANCE [None]
